FAERS Safety Report 13433880 (Version 1)
Quarter: 2017Q2

REPORT INFORMATION
  Report Type: Spontaneous
  Country: US (occurrence: US)
  Receive Date: 20170412
  Receipt Date: 20170412
  Transmission Date: 20170830
  Serious: Yes (Disabling, Other)
  Sender: FDA-Public Use
  Company Number: None

PATIENT
  Age: 75 Year
  Sex: Female
  Weight: 72.64 kg

DRUGS (27)
  1. COMBIVENT RESPIMAT [Concomitant]
     Active Substance: ALBUTEROL SULFATE\IPRATROPIUM BROMIDE
  2. ZETIA [Concomitant]
     Active Substance: EZETIMIBE
  3. SERTRALINE HCL [Concomitant]
     Active Substance: SERTRALINE HYDROCHLORIDE
  4. ESOMEPRAZOLE MAGNESIUM. [Concomitant]
     Active Substance: ESOMEPRAZOLE MAGNESIUM
  5. IPRATROPIUM BROMIDE. [Concomitant]
     Active Substance: IPRATROPIUM BROMIDE
  6. FLONASE [Concomitant]
     Active Substance: FLUTICASONE PROPIONATE
  7. TRIAMTERENE-HCTZ [Concomitant]
     Active Substance: HYDROCHLOROTHIAZIDE\TRIAMTERENE
  8. LIPITOR [Concomitant]
     Active Substance: ATORVASTATIN CALCIUM
  9. MONTELUKAST SODIUM. [Concomitant]
     Active Substance: MONTELUKAST SODIUM
  10. CELECOXIB. [Concomitant]
     Active Substance: CELECOXIB
  11. ABILIFY [Suspect]
     Active Substance: ARIPIPRAZOLE
     Indication: DEPRESSION
     Route: 048
     Dates: start: 20170220, end: 20170306
  12. ABILIFY [Concomitant]
     Active Substance: ARIPIPRAZOLE
  13. COZAAR [Concomitant]
     Active Substance: LOSARTAN POTASSIUM
  14. XYZAL [Concomitant]
     Active Substance: LEVOCETIRIZINE DIHYDROCHLORIDE
  15. TRAMADOL HCL [Concomitant]
     Active Substance: TRAMADOL HYDROCHLORIDE
  16. VITAMIN D [Concomitant]
     Active Substance: CHOLECALCIFEROL
  17. SOMA [Concomitant]
     Active Substance: CARISOPRODOL
  18. CRANBERRY. [Concomitant]
     Active Substance: CRANBERRY
  19. CALTRATE [Concomitant]
     Active Substance: CALCIUM CARBONATE
  20. ASPIRIN EC [Concomitant]
     Active Substance: ASPIRIN
  21. ADVAIR DISKUS [Concomitant]
     Active Substance: FLUTICASONE PROPIONATE\SALMETEROL XINAFOATE
  22. NITROSTAT [Concomitant]
     Active Substance: NITROGLYCERIN
  23. CURCUMIN [Concomitant]
     Active Substance: CURCUMIN
  24. LEVOTHYROXINE SODIUM. [Concomitant]
     Active Substance: LEVOTHYROXINE SODIUM
  25. POTASSIUM CHLORIDE. [Concomitant]
     Active Substance: POTASSIUM CHLORIDE
  26. FISH OIL [Concomitant]
     Active Substance: FISH OIL
  27. ESTRING [Concomitant]
     Active Substance: ESTRADIOL

REACTIONS (5)
  - Neck pain [None]
  - Depression [None]
  - Product substitution issue [None]
  - Bradyphrenia [None]
  - Back pain [None]

NARRATIVE: CASE EVENT DATE: 20170220
